FAERS Safety Report 5112925-2 (Version None)
Quarter: 2006Q3

REPORT INFORMATION
  Report Type: 
  Country: None (occurrence: None)
  Receive Date: 20060922
  Receipt Date: 20060601
  Transmission Date: 20061208
  Serious: No
  Sender: FDA-Public Use
  Company Number: 2006UW11637

PATIENT
  Age: 53 Year
  Sex: Male
  Weight: 104.5 kg

DRUGS (6)
  1. CRESTOR [Suspect]
     Indication: BLOOD CHOLESTEROL
     Route: 048
     Dates: start: 20060401, end: 20060424
  2. DIOVAN [Concomitant]
  3. NEXIUM [Concomitant]
     Route: 048
  4. BYETTA [Concomitant]
     Dates: start: 20051201, end: 20060501
  5. PLAVIX [Concomitant]
  6. SOMA [Concomitant]

REACTIONS (1)
  - DERMATITIS HERPETIFORMIS [None]
